FAERS Safety Report 8263101-6 (Version None)
Quarter: 2012Q2

REPORT INFORMATION
  Report Type: 
  Country: None (occurrence: None)
  Receive Date: 20120405
  Receipt Date: 20120402
  Transmission Date: 20120825
  Serious: Yes (Hospitalization, Other)
  Sender: FDA-Public Use
  Company Number: US-PFIZER INC-2011154070

PATIENT
  Sex: Female

DRUGS (2)
  1. CHANTIX [Suspect]
     Indication: SMOKING CESSATION THERAPY
     Dosage: UNK
     Dates: start: 20080601
  2. CHANTIX [Suspect]
     Dosage: UNK
     Dates: start: 20081101, end: 20081201

REACTIONS (8)
  - DEPRESSION [None]
  - ANXIETY [None]
  - ALCOHOLISM [None]
  - AMNESIA [None]
  - SUICIDE ATTEMPT [None]
  - NIGHTMARE [None]
  - PANIC ATTACK [None]
  - AGORAPHOBIA [None]
